FAERS Safety Report 7289197-6 (Version None)
Quarter: 2011Q1

REPORT INFORMATION
  Report Type: 
  Country: None (occurrence: None)
  Receive Date: 20110211
  Receipt Date: 20080729
  Transmission Date: 20110831
  Serious: Yes (Other)
  Sender: FDA-Public Use
  Company Number: PHHY2008CL37350

PATIENT
  Age: 63 Year

DRUGS (1)
  1. TAREG [Suspect]

REACTIONS (1)
  - PNEUMONIA [None]
